FAERS Safety Report 19928654 (Version 1)
Quarter: 2021Q4

REPORT INFORMATION
  Report Type: Spontaneous
  Country: CA (occurrence: CA)
  Receive Date: 20211007
  Receipt Date: 20211007
  Transmission Date: 20220303
  Serious: Yes (Hospitalization)
  Sender: FDA-Public Use
  Company Number: CA-TEVA-2021-CA-1960977

PATIENT
  Age: 66 Year
  Sex: Male
  Weight: 77 kg

DRUGS (10)
  1. LEUCOVORIN [Suspect]
     Active Substance: LEUCOVORIN
     Indication: Oesophageal cancer metastatic
     Route: 042
  2. ELOXATIN [Suspect]
     Active Substance: OXALIPLATIN
     Indication: Oesophageal cancer metastatic
     Route: 041
  3. FRAGMIN [Suspect]
     Active Substance: DALTEPARIN SODIUM
     Indication: Pulmonary embolism
     Dosage: 15000 IU (INTERNATIONAL UNIT) DAILY;
     Route: 058
  4. AMLODIPINE [Concomitant]
     Active Substance: AMLODIPINE BESYLATE
  5. DUTASTERIDE [Concomitant]
     Active Substance: DUTASTERIDE
  6. ONDANSETRON [Concomitant]
     Active Substance: ONDANSETRON
  7. OXAZEPAM [Concomitant]
     Active Substance: OXAZEPAM
  8. PANTOPRAZOLE [Concomitant]
     Active Substance: PANTOPRAZOLE
  9. QUETIAPINE [Concomitant]
     Active Substance: QUETIAPINE
  10. TAMSULOSIN [Concomitant]
     Active Substance: TAMSULOSIN

REACTIONS (5)
  - Anaemia [Recovered/Resolved]
  - Epistaxis [Recovered/Resolved]
  - Tachycardia [Recovered/Resolved]
  - Transfusion [Recovered/Resolved]
  - Vomiting [Recovered/Resolved]
